FAERS Safety Report 6583167-9 (Version None)
Quarter: 2010Q1

REPORT INFORMATION
  Report Type: 
  Country: None (occurrence: None)
  Receive Date: 20100216
  Receipt Date: 20100205
  Transmission Date: 20100710
  Serious: Yes (Hospitalization)
  Sender: FDA-Public Use
  Company Number: US-ROCHE-684665

PATIENT
  Sex: Male
  Weight: 88.4 kg

DRUGS (5)
  1. BEVACIZUMAB [Suspect]
     Indication: NON-SMALL CELL LUNG CANCER
     Route: 042
     Dates: start: 20081112, end: 20090204
  2. CARBOPLATIN [Suspect]
     Indication: NON-SMALL CELL LUNG CANCER
     Route: 042
     Dates: start: 20081112, end: 20090204
  3. PACLITAXEL [Suspect]
     Indication: NON-SMALL CELL LUNG CANCER
     Route: 042
     Dates: start: 20081112, end: 20090204
  4. AMLODIPINE [Concomitant]
     Dates: start: 20081028
  5. MORPHINE SULFATE [Concomitant]
     Dates: start: 20081120

REACTIONS (1)
  - OESOPHAGITIS [None]
